FAERS Safety Report 18325731 (Version 7)
Quarter: 2023Q1

REPORT INFORMATION
  Report Type: Spontaneous
  Country: US (occurrence: US)
  Receive Date: 20200929
  Receipt Date: 20230307
  Transmission Date: 20230418
  Serious: No
  Sender: FDA-Public Use
  Company Number: US-PFIZER INC-2020374214

PATIENT
  Age: 54 Year
  Sex: Female

DRUGS (7)
  1. SOMAVERT [Suspect]
     Active Substance: PEGVISOMANT
     Indication: Acromegaly
     Dosage: 15 MG (5 TIMES A WEEK)
     Route: 058
     Dates: start: 2005
  2. SOMAVERT [Suspect]
     Active Substance: PEGVISOMANT
     Dosage: 15 MG (4 TIMES PER WEEK)
     Route: 058
  3. SOMAVERT [Suspect]
     Active Substance: PEGVISOMANT
     Dosage: 15 MG (THREE TIMES PER WEEK)
     Route: 058
  4. SOMAVERT [Suspect]
     Active Substance: PEGVISOMANT
     Dosage: 15 MG (THREE TIMES WEEKLY)
     Route: 058
     Dates: start: 2005
  5. SOMAVERT [Suspect]
     Active Substance: PEGVISOMANT
     Dosage: 15 MG (THREE TIMES PER WEEK)
     Route: 058
     Dates: start: 2014
  6. SOMAVERT [Suspect]
     Active Substance: PEGVISOMANT
     Dosage: 15 MG, DAILY
  7. LANREOTIDE [Concomitant]
     Active Substance: LANREOTIDE
     Dosage: UNK(120MG/0.5 ML EVERY 28 DAYS)

REACTIONS (11)
  - Drug ineffective [Unknown]
  - Arthralgia [Unknown]
  - Myalgia [Unknown]
  - Asthenia [Unknown]
  - Headache [Unknown]
  - Pain in extremity [Unknown]
  - Pain in jaw [Unknown]
  - Abdominal discomfort [Unknown]
  - Diarrhoea [Unknown]
  - Limb discomfort [Unknown]
  - Off label use [Unknown]
